FAERS Safety Report 7337094-X (Version None)
Quarter: 2011Q1

REPORT INFORMATION
  Report Type: 
  Country: None (occurrence: None)
  Receive Date: 20110308
  Receipt Date: 20110225
  Transmission Date: 20110831
  Serious: Yes (Hospitalization)
  Sender: FDA-Public Use
  Company Number: US-CELGENEUS-163-21880-11020486

PATIENT
  Sex: Female
  Weight: 65.3 kg

DRUGS (2)
  1. REVLIMID [Suspect]
     Dosage: 25 MILLIGRAM
     Route: 048
     Dates: start: 20101105
  2. REVLIMID [Suspect]
     Dosage: 15 MILLIGRAM
     Route: 048
     Dates: start: 20110201, end: 20110101

REACTIONS (6)
  - FULL BLOOD COUNT DECREASED [None]
  - PAIN [None]
  - RASH [None]
  - SKIN ULCER [None]
  - ERYTHEMA [None]
  - OEDEMA [None]
